FAERS Safety Report 26045463 (Version 5)
Quarter: 2025Q4

REPORT INFORMATION
  Report Type: Report from Study
  Country: US (occurrence: US)
  Receive Date: 20251114
  Receipt Date: 20251221
  Transmission Date: 20260117
  Serious: Yes (Death, Hospitalization, Other)
  Sender: ABBVIE
  Company Number: US-ABBVIE-6521138

PATIENT
  Age: 85 Year
  Sex: Male

DRUGS (5)
  1. VYALEV [Suspect]
     Active Substance: FOSCARBIDOPA\FOSLEVODOPA
     Indication: Parkinson^s disease
     Dosage: LAST ADMIN DATE: 2025
     Route: 058
     Dates: start: 20251003, end: 20251006
  2. VYALEV [Suspect]
     Active Substance: FOSCARBIDOPA\FOSLEVODOPA
     Dosage: BASAL28 .25LOW .31 HIGH FOR 5 DAYS?FIRST ADMIN DATE: 2025?LAST ADMIN DATE: 2025
     Route: 058
  3. VYALEV [Suspect]
     Active Substance: FOSCARBIDOPA\FOSLEVODOPA
     Dosage: HIGH .45, LOW.28, BASE .36, FOR 2 DAYS?FIRST ADMIN DATE: 2025
     Route: 058
  4. VYALEV [Suspect]
     Active Substance: FOSCARBIDOPA\FOSLEVODOPA
     Dosage: DOSE FREQUENCY: 0.36 ML/HR?FIRST ADMIN DATE:2025?LAST ADMIN DATE:2025
     Route: 058
  5. VYALEV [Suspect]
     Active Substance: FOSCARBIDOPA\FOSLEVODOPA
     Route: 058
     Dates: start: 20251006, end: 20251214

REACTIONS (14)
  - Death [Fatal]
  - Gait inability [Not Recovered/Not Resolved]
  - Insomnia [Not Recovered/Not Resolved]
  - Dystonia [Unknown]
  - Urinary tract infection [Not Recovered/Not Resolved]
  - Screaming [Not Recovered/Not Resolved]
  - Catheter site mass [Recovered/Resolved]
  - Catheter site erythema [Recovered/Resolved]
  - CSF protein increased [Unknown]
  - Immobile [Unknown]
  - Catatonia [Unknown]
  - Encephalitis [Unknown]
  - Decubitus ulcer [Unknown]
  - Gastrointestinal tube insertion [Unknown]

NARRATIVE: CASE EVENT DATE: 20250101
